FAERS Safety Report 25813493 (Version 1)
Quarter: 2025Q3

REPORT INFORMATION
  Report Type: Spontaneous
  Country: JP (occurrence: JP)
  Receive Date: 20250917
  Receipt Date: 20250917
  Transmission Date: 20251020
  Serious: Yes (Life-Threatening, Hospitalization, Other)
  Sender: PFIZER
  Company Number: JP-MLMSERVICE-20250904-PI631668-00222-1

PATIENT
  Age: 73 Year
  Sex: Male
  Weight: 68.2 kg

DRUGS (5)
  1. METRONIDAZOLE [Suspect]
     Active Substance: METRONIDAZOLE
     Indication: Infection prophylaxis
     Dosage: 2000 MG, DAILY (ON DAY 7)
  2. LEVOFLOXACIN [Concomitant]
     Active Substance: LEVOFLOXACIN
     Indication: Infection prophylaxis
     Dosage: 500 MG, 1X/DAY (ON DAY 7)
  3. LEVOFLOXACIN [Concomitant]
     Active Substance: LEVOFLOXACIN
     Dosage: 250 MG, 1X/DAY (ON DAY 13)
  4. RAMELTEON [Concomitant]
     Active Substance: RAMELTEON
     Indication: Delirium
     Dosage: 8 MG, DAILY
  5. LEMBOREXANT [Concomitant]
     Active Substance: LEMBOREXANT
     Indication: Delirium
     Dosage: 5 MG, DAILY

REACTIONS (3)
  - Toxic encephalopathy [Recovering/Resolving]
  - Fall [Unknown]
  - Off label use [Unknown]
